FAERS Safety Report 17206532 (Version 1)
Quarter: 2019Q4

REPORT INFORMATION
  Report Type: Spontaneous
  Country: DE (occurrence: DE)
  Receive Date: 20191227
  Receipt Date: 20191227
  Transmission Date: 20200122
  Serious: Yes (Hospitalization)
  Sender: FDA-Public Use
  Company Number: DE-TEVA-2019-DE-1157492

PATIENT
  Age: 34 Year
  Sex: Female
  Weight: 83 kg

DRUGS (8)
  1. CIPROFLOXACIN. [Concomitant]
     Active Substance: CIPROFLOXACIN
     Dosage: 500 MG, 1-0-0-0, TABLETS
     Route: 048
  2. LEUPRORELIN [Concomitant]
     Active Substance: LEUPROLIDE ACETATE
     Dosage: 11.25 MG, 1-0-0-0. EVERY 3 MONTHS, LAST ON 08.03.2018, SOLUTION FOR INJECTION/INFUSION
     Route: 058
  3. AMPHO-MORONAL 10 MG [Concomitant]
     Dosage: 10 MG, 1-1-1-1, LOZENGES
     Route: 048
  4. CYTARABINE. [Suspect]
     Active Substance: CYTARABINE
     Dosage: NK MG, BY SCHEME, LAST ON 28.06.2018, SOLUTION FOR INJECTION/INFUSION
     Route: 042
  5. CALCIMAGON-D3 [Concomitant]
     Active Substance: CALCIUM\CHOLECALCIFEROL
     Dosage: NK MG/I.E., 1-0-0-0, CHEWABLE TABLETS
     Route: 048
  6. PANTOPRAZOL [Concomitant]
     Active Substance: PANTOPRAZOLE SODIUM
     Dosage: 40 MG, 1-0-0-0, TABLETS
     Route: 048
  7. MITOXANTRONE [Suspect]
     Active Substance: MITOXANTRONE HYDROCHLORIDE
     Dosage: NK MG, BY SCHEME, LAST ON 28.06.2018, SOLUTION FOR INJECTION/INFUSION
     Route: 042
  8. NUVARING [Concomitant]
     Active Substance: ETHINYL ESTRADIOL\ETONOGESTREL
     Dosage: 0.120|0.015 MG/24H, VAGINALRING
     Route: 067

REACTIONS (2)
  - General physical health deterioration [Unknown]
  - Pyrexia [Unknown]
